FAERS Safety Report 11794669 (Version 1)
Quarter: 2015Q4

REPORT INFORMATION
  Report Type: Spontaneous
  Country: FR (occurrence: FR)
  Receive Date: 20151202
  Receipt Date: 20151202
  Transmission Date: 20160305
  Serious: Yes (Hospitalization, Other)
  Sender: FDA-Public Use
  Company Number: FR-BAXTER-2015BAX063688

PATIENT
  Age: 56 Year
  Sex: Female
  Weight: 62.3 kg

DRUGS (9)
  1. EMEND [Suspect]
     Active Substance: APREPITANT
     Dosage: DECREASED DOSE
     Route: 065
  2. CELLTOP 100 MG/5 ML, SOLUTION INJECTABLE POUR PERFUSION [Suspect]
     Active Substance: ETOPOSIDE
     Dosage: VIP PROTOCOL
     Route: 065
     Dates: start: 20150817, end: 20150819
  3. CISPLATINE [Suspect]
     Active Substance: CISPLATIN
     Dosage: VIP PROTOCOL
     Route: 065
     Dates: start: 20150817, end: 20150819
  4. CELLTOP 100 MG/5 ML, SOLUTION INJECTABLE POUR PERFUSION [Suspect]
     Active Substance: ETOPOSIDE
     Indication: BLADDER CANCER
     Dosage: CYCLE 1
     Route: 065
     Dates: start: 20150601, end: 20150601
  5. CISPLATINE [Suspect]
     Active Substance: CISPLATIN
     Route: 065
     Dates: start: 20150622, end: 20150622
  6. HOLOXAN 2000 MG, POUDRE POUR USAGE PARENT?RAL [Suspect]
     Active Substance: IFOSFAMIDE
     Indication: BLADDER CANCER
     Dosage: 3 INJECTION
     Route: 042
     Dates: start: 20150817, end: 20150819
  7. EMEND [Suspect]
     Active Substance: APREPITANT
     Indication: PRODUCT USED FOR UNKNOWN INDICATION
     Route: 065
  8. CELLTOP 100 MG/5 ML, SOLUTION INJECTABLE POUR PERFUSION [Suspect]
     Active Substance: ETOPOSIDE
     Dosage: CYCLE 2
     Route: 065
     Dates: start: 20150622, end: 20150622
  9. CISPLATINE [Suspect]
     Active Substance: CISPLATIN
     Indication: BLADDER CANCER
     Route: 065
     Dates: start: 20150601, end: 20150601

REACTIONS (5)
  - Metastases to lymph nodes [Unknown]
  - Malignant neoplasm progression [Unknown]
  - Malnutrition [Unknown]
  - Toxic encephalopathy [Recovered/Resolved]
  - Pelvic neoplasm [Unknown]

NARRATIVE: CASE EVENT DATE: 20150819
